FAERS Safety Report 4312547-7 (Version None)
Quarter: 2004Q1

REPORT INFORMATION
  Report Type: 
  Country: None (occurrence: None)
  Receive Date: 20040305
  Receipt Date: 20040227
  Transmission Date: 20041129
  Serious: Yes (Death, Other)
  Sender: FDA-Public Use
  Company Number: PHBS2004JP02895

PATIENT
  Age: 66 Year
  Sex: Female

DRUGS (5)
  1. DIOVAN [Suspect]
     Indication: CARDIAC FAILURE
     Dosage: 80 MG, BID
     Route: 048
     Dates: start: 20030910, end: 20031001
  2. AMLODIPINE [Concomitant]
     Dosage: 5 MG, UNK
     Route: 048
  3. ALDACTAZIDE-A [Concomitant]
     Dosage: 25 MG, UNK
     Route: 048
  4. LASIX [Concomitant]
     Dosage: 60 MG, UNK
     Route: 048
  5. ASPIRIN [Concomitant]
     Dosage: 100 MG, UNK
     Route: 048

REACTIONS (5)
  - DEATH [None]
  - HAEMOGLOBIN DECREASED [None]
  - PANCYTOPENIA [None]
  - PLATELET COUNT DECREASED [None]
  - WHITE BLOOD CELL COUNT DECREASED [None]
